FAERS Safety Report 4322675-8 (Version None)
Quarter: 2004Q1

REPORT INFORMATION
  Report Type: 
  Country: None (occurrence: None)
  Receive Date: 20040319
  Receipt Date: 20030318
  Transmission Date: 20041129
  Serious: Yes (Disabling)
  Sender: FDA-Public Use
  Company Number: 334204

PATIENT
  Age: 56 Year
  Sex: Male
  Weight: 114.3 kg

DRUGS (1)
  1. BUMEX [Suspect]
     Dosage: 1 MG DAILY ORAL
     Route: 048
     Dates: start: 19980615, end: 19991031

REACTIONS (1)
  - RENAL FAILURE [None]
